FAERS Safety Report 6561878-9 (Version None)
Quarter: 2010Q1

REPORT INFORMATION
  Report Type: 
  Country: None (occurrence: None)
  Receive Date: 20100130
  Receipt Date: 20091030
  Transmission Date: 20100710
  Serious: No
  Sender: FDA-Public Use
  Company Number: US-ABBOTT-09P-163-0606150-00

PATIENT
  Sex: Male

DRUGS (2)
  1. HUMIRA [Suspect]
     Indication: RHEUMATOID ARTHRITIS
     Dates: start: 20080514, end: 20090401
  2. HUMIRA [Suspect]
     Dates: end: 20090909

REACTIONS (10)
  - DISCOMFORT [None]
  - ERYTHEMA [None]
  - IMPAIRED HEALING [None]
  - JOINT DISLOCATION [None]
  - LOCALISED INFECTION [None]
  - MOBILITY DECREASED [None]
  - OEDEMA PERIPHERAL [None]
  - PAIN IN EXTREMITY [None]
  - SKIN ULCER [None]
  - WOUND [None]
